FAERS Safety Report 19705345 (Version 3)
Quarter: 2022Q1

REPORT INFORMATION
  Report Type: Spontaneous
  Country: US (occurrence: US)
  Receive Date: 20210816
  Receipt Date: 20220331
  Transmission Date: 20220423
  Serious: Yes (Other)
  Sender: FDA-Public Use
  Company Number: US-SANOFI-00718378

PATIENT
  Age: 67 Year
  Sex: Female

DRUGS (2)
  1. TOUJEO [Suspect]
     Active Substance: INSULIN GLARGINE
     Indication: Type 2 diabetes mellitus
     Dosage: 29 UNITS ONCE DAILY
     Route: 065
     Dates: start: 201605
  2. TOUJEO [Suspect]
     Active Substance: INSULIN GLARGINE
     Dosage: 26 IU, QD
     Route: 065
     Dates: start: 201605

REACTIONS (7)
  - Myocardial infarction [Recovered/Resolved]
  - Abdominal distension [Unknown]
  - Constipation [Unknown]
  - Impaired quality of life [Unknown]
  - Diverticulum [Unknown]
  - Weight increased [Unknown]
  - Incorrect dose administered [Unknown]
